FAERS Safety Report 19430313 (Version 1)
Quarter: 2021Q2

REPORT INFORMATION
  Report Type: Spontaneous
  Country: US (occurrence: US)
  Receive Date: 20210617
  Receipt Date: 20210617
  Transmission Date: 20210717
  Serious: No
  Sender: FDA-Public Use
  Company Number: US-ACCORD-180839

PATIENT
  Age: 71 Year
  Sex: Female

DRUGS (3)
  1. CAPECITABINE ACCORD [Suspect]
     Active Substance: CAPECITABINE
     Indication: BREAST CANCER
     Dosage: STRENGTH: 500 MG; 4 TABLETS TWICE DAILY FOR 14 DAYS AND 7 DAYS
     Route: 048
     Dates: start: 20200414
  2. AFINITOR [Concomitant]
     Active Substance: EVEROLIMUS
  3. EXEMESTANE. [Concomitant]
     Active Substance: EXEMESTANE

REACTIONS (1)
  - Blister [Not Recovered/Not Resolved]
